FAERS Safety Report 7068207-5 (Version None)
Quarter: 2010Q4

REPORT INFORMATION
  Report Type: 
  Country: None (occurrence: None)
  Receive Date: 20101028
  Receipt Date: 20100824
  Transmission Date: 20110411
  Serious: No
  Sender: FDA-Public Use
  Company Number: US-MYLANLABS-2010S1015689

PATIENT
  Age: 45 Year
  Sex: Male
  Weight: 120.2 kg

DRUGS (3)
  1. DIAZEPAM [Suspect]
     Indication: MUSCLE SPASMS
     Route: 048
     Dates: start: 20060101, end: 20100716
  2. LASIX [Concomitant]
     Dosage: BID/PRN
  3. METFORMIN [Concomitant]
     Indication: DIABETES MELLITUS

REACTIONS (1)
  - DRUG SCREEN POSITIVE [None]
